FAERS Safety Report 4850988-X (Version None)
Quarter: 2005Q4

REPORT INFORMATION
  Report Type: 
  Country: None (occurrence: None)
  Receive Date: 20051212
  Receipt Date: 20051129
  Transmission Date: 20060501
  Serious: Yes (Life-Threatening, Hospitalization)
  Sender: FDA-Public Use
  Company Number: FR-MERCK-0511FRA00099

PATIENT
  Age: 69 Year
  Sex: Female

DRUGS (12)
  1. EMEND [Suspect]
     Indication: PROPHYLAXIS OF NAUSEA AND VOMITING
     Route: 048
     Dates: start: 20051117, end: 20051117
  2. EMEND [Suspect]
     Route: 048
     Dates: start: 20051118, end: 20051119
  3. CISPLATIN [Suspect]
     Indication: UTERINE CANCER
     Route: 042
     Dates: start: 20051117, end: 20051119
  4. IFOSFAMIDE [Suspect]
     Indication: UTERINE CANCER
     Route: 042
     Dates: start: 20051117, end: 20051119
  5. DOXORUBICIN [Suspect]
     Indication: UTERINE CANCER
     Route: 042
     Dates: start: 20051117, end: 20051119
  6. FUROSEMIDE [Suspect]
     Route: 048
     Dates: start: 20051118, end: 20051118
  7. FUROSEMIDE [Suspect]
     Route: 048
     Dates: start: 20051119, end: 20051119
  8. FUROSEMIDE [Suspect]
     Route: 048
     Dates: start: 20051120, end: 20051120
  9. METHYLPREDNISOLONE [Suspect]
     Indication: PROPHYLAXIS OF NAUSEA AND VOMITING
     Route: 051
     Dates: start: 20051117, end: 20051119
  10. METOCLOPRAMIDE [Concomitant]
     Indication: PROPHYLAXIS OF NAUSEA AND VOMITING
     Route: 051
     Dates: start: 20051117, end: 20051120
  11. GRANISETRON [Concomitant]
     Indication: PROPHYLAXIS OF NAUSEA AND VOMITING
     Route: 042
     Dates: start: 20051117, end: 20051120
  12. COZAAR [Concomitant]
     Indication: HYPERTENSION
     Route: 048

REACTIONS (6)
  - BONE MARROW FAILURE [None]
  - DRUG INTERACTION [None]
  - ENTEROCOLITIS [None]
  - GASTROINTESTINAL HAEMORRHAGE [None]
  - HAEMODIALYSIS [None]
  - RENAL FAILURE [None]
